FAERS Safety Report 7943971-9 (Version None)
Quarter: 2011Q4

REPORT INFORMATION
  Report Type: 
  Country: None (occurrence: None)
  Receive Date: 20111128
  Receipt Date: 20111124
  Transmission Date: 20120403
  Serious: Yes (Other)
  Sender: FDA-Public Use
  Company Number: BR-ABBOTT-11P-020-0860966-00

PATIENT
  Sex: Male
  Weight: 65 kg

DRUGS (6)
  1. METRONIDAZOLE [Concomitant]
     Indication: PRODUCT USED FOR UNKNOWN INDICATION
     Route: 048
  2. HUMIRA [Suspect]
     Indication: CROHN'S DISEASE
     Dates: start: 20090801
  3. PREDNISONE TAB [Concomitant]
     Indication: INFECTION
     Route: 048
  4. HUMIRA [Suspect]
     Dosage: INDUCTION DOSE 4 INJECTIONS
     Route: 058
     Dates: start: 20110930, end: 20110930
  5. AZATHIOPRINE [Concomitant]
     Indication: IMMUNOSUPPRESSION
     Route: 048
  6. HUMIRA [Suspect]
     Route: 058

REACTIONS (2)
  - CROHN'S DISEASE [None]
  - ANAL FISTULA [None]
